FAERS Safety Report 8764067 (Version 3)
Quarter: 2012Q4

REPORT INFORMATION
  Report Type: 
  Country: JP (occurrence: JP)
  Receive Date: 20120831
  Receipt Date: 20120920
  Transmission Date: 20130627
  Serious: Yes (Other)
  Sender: FDA-Public Use
  Company Number: JP-NOVOPROD-358883

PATIENT
  Age: 74 Year
  Sex: Male

DRUGS (1)
  1. SUREPOST [Suspect]
     Indication: DIABETES MELLITUS
     Dosage: 0.75 mg, qd
     Route: 048
     Dates: start: 20120802, end: 20120805

REACTIONS (1)
  - Hypoglycaemic unconsciousness [Recovered/Resolved]
